FAERS Safety Report 5312522-X (Version None)
Quarter: 2007Q2

REPORT INFORMATION
  Report Type: 
  Country: None (occurrence: None)
  Receive Date: 20070430
  Receipt Date: 20061215
  Transmission Date: 20071010
  Serious: No
  Sender: FDA-Public Use
  Company Number: 2006UW28094

PATIENT
  Age: 83 Year
  Sex: Female

DRUGS (3)
  1. NEXIUM [Suspect]
     Indication: GASTROOESOPHAGEAL REFLUX DISEASE
     Route: 048
  2. AMARYL [Concomitant]
  3. NORVASC [Concomitant]

REACTIONS (1)
  - INCREASED UPPER AIRWAY SECRETION [None]
